FAERS Safety Report 22273635 (Version 4)
Quarter: 2023Q2

REPORT INFORMATION
  Report Type: Report from Study
  Country: FR (occurrence: FR)
  Receive Date: 20230502
  Receipt Date: 20230515
  Transmission Date: 20230721
  Serious: Yes (Life-Threatening, Hospitalization, Other)
  Sender: FDA-Public Use
  Company Number: FR-002147023-NVSC2023FR098088

PATIENT
  Age: 47 Year
  Sex: Male
  Weight: 88 kg

DRUGS (8)
  1. TABRECTA [Suspect]
     Active Substance: CAPMATINIB
     Indication: Oesophageal cancer metastatic
     Dosage: 800 MG, QD (EVERYDAY)
     Route: 048
     Dates: start: 20220804, end: 20220819
  2. SPARTALIZUMAB [Suspect]
     Active Substance: SPARTALIZUMAB
     Indication: Oesophageal cancer metastatic
     Dosage: 300 MG, QD (EVERYDAY)
     Route: 042
     Dates: start: 20220804, end: 20220804
  3. SPARTALIZUMAB [Suspect]
     Active Substance: SPARTALIZUMAB
     Dosage: UNK
     Route: 042
     Dates: start: 20220902, end: 20221002
  4. PIPERACILLIN AND TAZOBACTAM [Concomitant]
     Active Substance: PIPERACILLIN SODIUM\TAZOBACTAM SODIUM
     Indication: Septic shock
     Dosage: 4 DOSAGE FORM
     Route: 042
     Dates: start: 20220830
  5. PANTOPRAZOLE [Concomitant]
     Active Substance: PANTOPRAZOLE
     Indication: Gastrooesophageal reflux disease
     Dosage: 40 MG
     Route: 048
     Dates: start: 20220830
  6. DAPTOMYCIN [Concomitant]
     Active Substance: DAPTOMYCIN
     Indication: Septic shock
     Dosage: 850 MG
     Route: 042
     Dates: start: 20220830
  7. LOVENOX [Concomitant]
     Active Substance: ENOXAPARIN SODIUM
     Indication: Prophylaxis
     Dosage: 4000 IU
     Route: 058
     Dates: start: 20220830
  8. LANSOPRAZOLE [Concomitant]
     Active Substance: LANSOPRAZOLE
     Indication: Product used for unknown indication
     Dosage: UNK
     Route: 065

REACTIONS (3)
  - Anaphylactic shock [Recovered/Resolved]
  - Drug hypersensitivity [Recovered/Resolved]
  - Hepatic cytolysis [Recovered/Resolved]

NARRATIVE: CASE EVENT DATE: 20220817
